FAERS Safety Report 5511101-9 (Version None)
Quarter: 2007Q4

REPORT INFORMATION
  Report Type: 
  Country: None (occurrence: None)
  Receive Date: 20071107
  Receipt Date: 20071015
  Transmission Date: 20080405
  Serious: Yes (Disabling, Congenital Anomaly)
  Sender: FDA-Public Use
  Company Number: 8027844

PATIENT
  Sex: Female
  Weight: 2.34 kg

DRUGS (10)
  1. KEPPRA [Suspect]
     Indication: EPILEPSY
     Dosage: TRP
     Route: 064
     Dates: start: 20051101, end: 20060801
  2. TRILEPTAL [Suspect]
     Indication: EPILEPSY
     Dosage: TRP
     Route: 064
     Dates: start: 20051101, end: 20060801
  3. PLAQUENIL [Suspect]
     Indication: SYSTEMIC LUPUS ERYTHEMATOSUS
     Dosage: TRP
     Route: 064
     Dates: start: 20051101, end: 20060801
  4. PARACETAMOL [Suspect]
     Indication: SYSTEMIC LUPUS ERYTHEMATOSUS
     Dosage: TRP
     Route: 064
     Dates: start: 20051101, end: 20060801
  5. CORTANCYL [Concomitant]
  6. ACTONEL [Concomitant]
  7. OROCAL D (3) [Concomitant]
  8. DIFFU K [Concomitant]
  9. SPECIAFOLDINE [Concomitant]
  10. POTASSIUM CHLORIDE [Concomitant]

REACTIONS (5)
  - CAESAREAN SECTION [None]
  - CHONDRODYSTROPHY [None]
  - DRUG EXPOSURE DURING PREGNANCY [None]
  - DYSMORPHISM [None]
  - PLACENTAL DISORDER [None]
